FAERS Safety Report 25023712 (Version 1)
Quarter: 2025Q1

REPORT INFORMATION
  Report Type: Spontaneous
  Country: US (occurrence: None)
  Receive Date: 20250228
  Receipt Date: 20250228
  Transmission Date: 20250409
  Serious: Yes (Hospitalization)
  Sender: FDA-CTU
  Company Number: None

PATIENT
  Age: 78 Year
  Sex: Male
  Weight: 115 kg

DRUGS (1)
  1. FLECAINIDE ACETATE [Suspect]
     Active Substance: FLECAINIDE ACETATE
     Indication: Atrial fibrillation
     Dosage: 100.00 MG TWICE A DAY ORAL ?
     Route: 048
     Dates: start: 20240430, end: 20240603

REACTIONS (4)
  - Syncope [None]
  - Fall [None]
  - Dizziness [None]
  - Loss of consciousness [None]

NARRATIVE: CASE EVENT DATE: 20240603
